FAERS Safety Report 5714114-7 (Version None)
Quarter: 2008Q2

REPORT INFORMATION
  Report Type: 
  Country: None (occurrence: None)
  Receive Date: 20080422
  Receipt Date: 20080422
  Transmission Date: 20081010
  Serious: Yes (Other)
  Sender: FDA-Public Use
  Company Number: None

PATIENT
  Sex: Female
  Weight: 63.5036 kg

DRUGS (2)
  1. SOLODYN [Suspect]
     Indication: ACNE
     Dosage: ONE TABLET EVERY DAY PO
     Route: 048
     Dates: start: 20080115, end: 20080118
  2. SOLODYN [Suspect]
     Indication: ROSACEA
     Dosage: ONE TABLET EVERY DAY PO
     Route: 048
     Dates: start: 20080115, end: 20080118

REACTIONS (4)
  - CHEST DISCOMFORT [None]
  - DYSPNOEA [None]
  - MEMORY IMPAIRMENT [None]
  - PYREXIA [None]
